FAERS Safety Report 6453083-1 (Version None)
Quarter: 2009Q4

REPORT INFORMATION
  Report Type: 
  Country: None (occurrence: None)
  Receive Date: 20091124
  Receipt Date: 20091111
  Transmission Date: 20100525
  Serious: Yes (Hospitalization, Disabling)
  Sender: FDA-Public Use
  Company Number: NL-ELI_LILLY_AND_COMPANY-NL200910005529

PATIENT
  Sex: Female
  Weight: 59 kg

DRUGS (11)
  1. ALIMTA [Suspect]
     Indication: NON-SMALL CELL LUNG CANCER
     Dosage: 500 MG/M2, UNKNOWN
     Route: 065
     Dates: start: 20090801
  2. ALIMTA [Suspect]
     Dosage: 500 MG/KG, UNKNOWN
     Route: 065
     Dates: start: 20090901
  3. ALIMTA [Suspect]
     Dosage: 75 %
     Dates: start: 20091001, end: 20091001
  4. CISPLATIN [Concomitant]
     Dosage: 5 AUC
     Route: 065
     Dates: start: 20090801
  5. CISPLATIN [Concomitant]
     Dosage: 5 AUC
     Dates: start: 20090901
  6. CISPLATIN [Concomitant]
     Dosage: 75 % 5 AUC
     Dates: start: 20091001, end: 20091001
  7. OMEPRAZOLE [Concomitant]
     Dosage: 20 MG, UNKNOWN
     Route: 065
  8. DEXAMETHASONE [Concomitant]
     Dosage: 10 MG, UNKNOWN
     Route: 042
  9. TEMAZEPAM [Concomitant]
     Dosage: 20 MG, UNKNOWN
     Route: 065
  10. FOLIC ACID [Concomitant]
     Dosage: 0.5 MG, UNKNOWN
     Route: 065
  11. CYANOCOBALAMIN [Concomitant]
     Dosage: 100 UG, UNKNOWN
     Route: 030

REACTIONS (5)
  - APHASIA [None]
  - CEREBRAL INFARCTION [None]
  - HEMIANOPIA [None]
  - HEMIPARESIS [None]
  - THROMBOCYTOPENIA [None]
